FAERS Safety Report 8583648-2 (Version None)
Quarter: 2012Q3

REPORT INFORMATION
  Report Type: 
  Country: None (occurrence: None)
  Receive Date: 20120809
  Receipt Date: 20120702
  Transmission Date: 20120928
  Serious: Yes (Other)
  Sender: FDA-Public Use
  Company Number: US-009507513-2012SP022629

PATIENT

DRUGS (4)
  1. TEMODAR [Suspect]
     Dosage: 250 MG, X 5 DAYS ON MONTHLY BASIS
     Dates: start: 20110201
  2. TEMODAR [Suspect]
     Indication: PRODUCT USED FOR UNKNOWN INDICATION
     Dosage: 250 MG, X 5 DAYS ON MONTHLY BASIS
     Route: 048
     Dates: start: 20010101
  3. KYTRIL [Concomitant]
     Indication: PRODUCT USED FOR UNKNOWN INDICATION
     Route: 048
  4. XANAX [Concomitant]
     Indication: PRODUCT USED FOR UNKNOWN INDICATION

REACTIONS (3)
  - IMPAIRED WORK ABILITY [None]
  - UNEVALUABLE EVENT [None]
  - DISEASE RECURRENCE [None]
